FAERS Safety Report 21343006 (Version 1)
Quarter: 2022Q3

REPORT INFORMATION
  Report Type: Spontaneous
  Country: US (occurrence: US)
  Receive Date: 20220916
  Receipt Date: 20220916
  Transmission Date: 20221027
  Serious: No
  Sender: FDA-Public Use
  Company Number: US-PFIZER INC-202201165812

PATIENT
  Age: 59 Year
  Sex: Female

DRUGS (3)
  1. PAXLOVID [Interacting]
     Active Substance: NIRMATRELVIR\RITONAVIR
     Indication: COVID-19 treatment
     Dosage: UNK
     Dates: start: 20220831, end: 20220905
  2. ESTROGENS [Interacting]
     Active Substance: ESTROGENS
     Indication: Hormone replacement therapy
     Dosage: UNK
  3. PROGESTERONE [Interacting]
     Active Substance: PROGESTERONE
     Indication: Hormone replacement therapy
     Dosage: UNK

REACTIONS (2)
  - Inhibitory drug interaction [Unknown]
  - Hot flush [Unknown]

NARRATIVE: CASE EVENT DATE: 20220831
